FAERS Safety Report 8127780-6 (Version None)
Quarter: 2012Q1

REPORT INFORMATION
  Report Type: 
  Country: None (occurrence: None)
  Receive Date: 20120210
  Receipt Date: 20120202
  Transmission Date: 20120608
  Serious: Yes (Hospitalization, Other)
  Sender: FDA-Public Use
  Company Number: US-BAYER-2012-000136

PATIENT
  Age: 22 Year
  Sex: Female
  Weight: 105.22 kg

DRUGS (15)
  1. YAZ [Suspect]
     Indication: ACNE
     Dosage: UNK
     Dates: start: 20080101, end: 20090101
  2. MINOCYCLINE HCL [Concomitant]
     Dosage: UNK
     Dates: start: 20000101
  3. YASMIN [Suspect]
     Indication: CONTRACEPTION
     Dosage: UNK
     Dates: start: 20010101, end: 20070101
  4. CYMBALTA [Concomitant]
  5. YASMIN [Suspect]
     Indication: ACNE
  6. YASMIN [Suspect]
     Indication: PREMENSTRUAL SYNDROME
  7. SPIRONOLACTONE [Concomitant]
     Indication: POLYCYSTIC OVARIES
     Dosage: UNK
     Dates: start: 20000101
  8. SPIRONOLACTONE [Concomitant]
     Indication: ACNE CYSTIC
  9. YAZ [Suspect]
     Indication: CONTRACEPTION
     Dosage: UNK
     Dates: start: 20080101, end: 20090101
  10. YASMIN [Suspect]
     Indication: POLYCYSTIC OVARIES
  11. MIRENA [Concomitant]
     Dosage: UNK
     Dates: start: 20090101
  12. NSAID'S [Concomitant]
     Dosage: UNK
     Dates: start: 20000101
  13. SEASONIQUE [Concomitant]
     Indication: CONTRACEPTION
  14. YAZ [Suspect]
     Indication: PREMENSTRUAL SYNDROME
  15. YAZ [Suspect]
     Indication: POLYCYSTIC OVARIES

REACTIONS (17)
  - CHOLECYSTITIS CHRONIC [None]
  - FEAR OF DEATH [None]
  - CHOLECYSTECTOMY [None]
  - NERVOUSNESS [None]
  - INJURY [None]
  - PANIC ATTACK [None]
  - DYSPNOEA [None]
  - GASTROINTESTINAL PAIN [None]
  - EMOTIONAL DISTRESS [None]
  - FLATULENCE [None]
  - ABDOMINAL PAIN [None]
  - POST GASTRIC SURGERY SYNDROME [None]
  - FAECAL INCONTINENCE [None]
  - ENDOMETRIOSIS [None]
  - DEPRESSION [None]
  - PAIN [None]
  - BACK PAIN [None]
